FAERS Safety Report 5215932-4 (Version None)
Quarter: 2007Q1

REPORT INFORMATION
  Report Type: 
  Country: None (occurrence: None)
  Receive Date: 20070123
  Receipt Date: 20070115
  Transmission Date: 20070707
  Serious: Yes (Hospitalization)
  Sender: FDA-Public Use
  Company Number: BE-ELI_LILLY_AND_COMPANY-BE200701002660

PATIENT
  Age: 78 Year
  Sex: Female

DRUGS (4)
  1. TERIPARATIDE [Suspect]
     Dosage: 20 UG, DAILY (1/D)
     Route: 030
     Dates: start: 20060313
  2. DAFALGAN                                /FRA/ [Concomitant]
     Indication: PAIN
  3. CONTRAMAL [Concomitant]
     Indication: PAIN
  4. HYPNOTICS AND SEDATIVES [Concomitant]

REACTIONS (2)
  - FALL [None]
  - HIP FRACTURE [None]
